FAERS Safety Report 7472017-4 (Version None)
Quarter: 2011Q2

REPORT INFORMATION
  Report Type: 
  Country: None (occurrence: None)
  Receive Date: 20110511
  Receipt Date: 20100927
  Transmission Date: 20111010
  Serious: Yes (Other)
  Sender: FDA-Public Use
  Company Number: A0884397A

PATIENT
  Sex: Female

DRUGS (2)
  1. TYKERB [Suspect]
     Indication: BREAST CANCER
  2. XELODA [Suspect]
     Indication: BREAST CANCER

REACTIONS (2)
  - NEOPLASM MALIGNANT [None]
  - DRUG EFFECT DECREASED [None]
